FAERS Safety Report 7497393-8 (Version None)
Quarter: 2011Q2

REPORT INFORMATION
  Report Type: 
  Country: None (occurrence: None)
  Receive Date: 20110523
  Receipt Date: 20110517
  Transmission Date: 20111010
  Serious: Yes (Other)
  Sender: FDA-Public Use
  Company Number: JP-SANOFI-AVENTIS-2011SA030832

PATIENT
  Sex: Female
  Weight: 48.1 kg

DRUGS (12)
  1. LANTUS [Concomitant]
     Route: 058
     Dates: start: 20101110, end: 20110131
  2. LANTUS [Concomitant]
     Route: 058
     Dates: start: 20101103, end: 20101109
  3. APIDRA [Suspect]
     Route: 058
     Dates: start: 20101106, end: 20110131
  4. APIDRA [Suspect]
     Dosage: 14-8-10 UNITIS
     Route: 058
     Dates: start: 20110201
  5. APIDRA [Suspect]
     Indication: DIABETES MELLITUS
     Route: 058
     Dates: start: 20101025, end: 20101105
  6. SEPAMIT [Concomitant]
     Dosage: IT WAS STARTED BEFORE THE ADMINISTRATION OF INSULIN GLULISINE.
     Route: 048
  7. FLUITRAN [Concomitant]
     Dosage: IT WAS STARTED BEFORE THE ADMINISTRATION OF INSULIN GLULISINE.
     Route: 048
  8. MARZULENE S [Concomitant]
     Dosage: IT WAS STARTED BEFORE THE ADMINISTRATION OF INSULIN GLULISINE.
     Route: 048
  9. LANTUS [Concomitant]
     Indication: DIABETES MELLITUS
     Route: 058
     Dates: start: 20101025, end: 20101102
  10. OLMESARTAN MEDOXOMIL [Concomitant]
     Dosage: IT WAS STARTED BEFORE THE ADMINISTRATION OF INSULIN GLULISINE.
     Route: 048
  11. GASMOTIN [Concomitant]
     Dosage: IT WAS STARTED BEFORE THE ADMINISTRATION OF INSULIN GLULISINE.
     Route: 048
  12. PANSPORIN [Concomitant]
     Route: 041
     Dates: start: 20101121, end: 20101130

REACTIONS (1)
  - ALANINE AMINOTRANSFERASE INCREASED [None]
